FAERS Safety Report 4575003-7 (Version None)
Quarter: 2005Q1

REPORT INFORMATION
  Report Type: 
  Country: None (occurrence: None)
  Receive Date: 20050208
  Receipt Date: 20041216
  Transmission Date: 20050727
  Serious: Yes (Life-Threatening, Hospitalization)
  Sender: FDA-Public Use
  Company Number: JP-BRISTOL-MYERS SQUIBB COMPANY-12798229

PATIENT
  Age: 55 Year
  Sex: Female

DRUGS (4)
  1. TAXOL [Suspect]
     Indication: BREAST CANCER
     Dosage: START DATE:  28-SEP-2004
     Route: 041
     Dates: start: 20041102, end: 20041102
  2. HERCEPTIN [Suspect]
     Indication: BREAST CANCER
     Dosage: START DATE:  14-SEP-2004 (192 MG); 96 MG BEGINNING 28-SEP-2004
     Route: 041
     Dates: start: 20041102, end: 20041102
  3. ZANTAC [Concomitant]
     Route: 041
     Dates: start: 20040928, end: 20041102
  4. DECADRON [Concomitant]
     Route: 041
     Dates: start: 20040928, end: 20041102

REACTIONS (1)
  - PULMONARY OEDEMA [None]
